FAERS Safety Report 14532672 (Version 3)
Quarter: 2018Q1

REPORT INFORMATION
  Report Type: Report from Study
  Country: None (occurrence: IT)
  Receive Date: 20180214
  Receipt Date: 20180316
  Transmission Date: 20180509
  Serious: Yes (Hospitalization)
  Sender: FDA-Public Use
  Company Number: IT-ABBVIE-18K-083-2256914-00

PATIENT
  Age: 74 Year
  Sex: Male

DRUGS (1)
  1. DUODOPA [Suspect]
     Active Substance: CARBIDOPA\LEVODOPA
     Indication: PARKINSON^S DISEASE
     Dosage: MD 6+3??CR 4,0??ED 2,5
     Route: 050
     Dates: start: 20160513

REACTIONS (2)
  - Pneumonia [Recovering/Resolving]
  - Stoma site infection [Unknown]

NARRATIVE: CASE EVENT DATE: 20180206
